FAERS Safety Report 4780419-X (Version None)
Quarter: 2005Q3

REPORT INFORMATION
  Report Type: 
  Country: None (occurrence: None)
  Receive Date: 20050927
  Receipt Date: 20030324
  Transmission Date: 20060218
  Serious: Yes (Life-Threatening)
  Sender: FDA-Public Use
  Company Number: US-BRISTOL-MYERS SQUIBB COMPANY-12174561

PATIENT
  Age: 42 Year
  Sex: Female

DRUGS (12)
  1. CETUXIMAB [Suspect]
     Indication: NON-SMALL CELL LUNG CANCER
     Dosage: MOST RECENT DOSE PRIOR TO EVENT: 27-MAR-2002
     Route: 042
     Dates: start: 20020327, end: 20020327
  2. CARBOPLATIN [Suspect]
     Indication: NON-SMALL CELL LUNG CANCER
     Route: 042
     Dates: start: 20020327, end: 20020327
  3. GEMCITABINE [Suspect]
     Indication: NON-SMALL CELL LUNG CANCER
     Route: 042
     Dates: start: 20020327, end: 20020327
  4. ALLEGRA [Concomitant]
     Dates: start: 20021206
  5. ACCUTANE [Concomitant]
     Indication: DERMATITIS ACNEIFORM
     Dates: start: 20020327
  6. DOXYCYCLINE [Concomitant]
     Dates: start: 20020327
  7. PRILOSEC [Concomitant]
  8. NYSTATIN [Concomitant]
     Dates: start: 20020327
  9. ADVAIR DISKUS 100/50 [Concomitant]
     Dates: start: 20010601
  10. BACTROBAN [Concomitant]
  11. TUSSIONEX [Concomitant]
     Dates: start: 20011011
  12. KLARON [Concomitant]

REACTIONS (1)
  - DEEP VEIN THROMBOSIS [None]
